FAERS Safety Report 5163031-2 (Version None)
Quarter: 2006Q4

REPORT INFORMATION
  Report Type: 
  Country: None (occurrence: None)
  Receive Date: 20061201
  Receipt Date: 20061123
  Transmission Date: 20070319
  Serious: Yes (Hospitalization)
  Sender: FDA-Public Use
  Company Number: GR-ABBOTT-06P-066-0351538-00

PATIENT
  Age: 75 Year
  Sex: Female
  Weight: 70 kg

DRUGS (7)
  1. HUMIRA [Suspect]
     Indication: RHEUMATOID ARTHRITIS
     Route: 058
     Dates: start: 20060913, end: 20061114
  2. METHOTREXATE [Suspect]
     Indication: RHEUMATOID ARTHRITIS
     Route: 048
     Dates: start: 20061023, end: 20061114
  3. PREDNISOLONE [Concomitant]
     Indication: RHEUMATOID ARTHRITIS
     Route: 048
     Dates: start: 20030404, end: 20061114
  4. ALENDRONATE SODIUM [Concomitant]
     Indication: OSTEOPOROSIS
     Route: 048
     Dates: start: 20030404, end: 20061114
  5. CIBADREX [Concomitant]
     Indication: HYPERTENSION
     Route: 048
     Dates: start: 20050711, end: 20061114
  6. METHOTREXATE SODIUM [Concomitant]
     Indication: RHEUMATOID ARTHRITIS
     Route: 048
     Dates: start: 20030401, end: 20060829
  7. LEFLUNOMIDE [Concomitant]
     Indication: RHEUMATOID ARTHRITIS
     Route: 048
     Dates: start: 20040920, end: 20050204

REACTIONS (3)
  - PANCYTOPENIA [None]
  - PHARYNGOLARYNGEAL PAIN [None]
  - UNEVALUABLE EVENT [None]
